FAERS Safety Report 18923330 (Version 1)
Quarter: 2021Q1

REPORT INFORMATION
  Report Type: Spontaneous
  Country: US (occurrence: US)
  Receive Date: 20210222
  Receipt Date: 20210222
  Transmission Date: 20210420
  Serious: No
  Sender: FDA-Public Use
  Company Number: US-PFIZER INC-2020319235

PATIENT
  Age: 86 Year
  Sex: Male

DRUGS (2)
  1. LYRICA [Suspect]
     Active Substance: PREGABALIN
     Indication: NEUROPATHY PERIPHERAL
     Dosage: 300 MG, 3X/DAY (1 TAB TID (THREE TIMES A DAY))
  2. LYRICA [Suspect]
     Active Substance: PREGABALIN
     Indication: OEDEMA
     Dosage: 600 MG, 3X/DAY [600MG TID (THREE TIMES A DAY)]
     Dates: start: 20200817

REACTIONS (2)
  - Overdose [Unknown]
  - Hypoacusis [Unknown]

NARRATIVE: CASE EVENT DATE: 20200817
